FAERS Safety Report 8013246-0 (Version None)
Quarter: 2011Q4

REPORT INFORMATION
  Report Type: 
  Country: None (occurrence: None)
  Receive Date: 20111229
  Receipt Date: 20111215
  Transmission Date: 20120403
  Serious: Yes (Death)
  Sender: FDA-Public Use
  Company Number: FR-MYLANLABS-2011S1026011

PATIENT
  Age: 32 Year
  Sex: Female

DRUGS (2)
  1. PROPRANOLOL [Suspect]
  2. CLONAZEPAM [Suspect]

REACTIONS (4)
  - TOXICITY TO VARIOUS AGENTS [None]
  - SHOCK [None]
  - CARDIAC ARREST [None]
  - MULTI-ORGAN FAILURE [None]
